FAERS Safety Report 5099647-1 (Version None)
Quarter: 2006Q3

REPORT INFORMATION
  Report Type: 
  Country: None (occurrence: None)
  Receive Date: 20060906
  Receipt Date: 20060822
  Transmission Date: 20061208
  Serious: Yes (Hospitalization)
  Sender: FDA-Public Use
  Company Number: 2006101768

PATIENT
  Age: 25 Year
  Sex: Male
  Weight: 90 kg

DRUGS (3)
  1. FLUCONAZOLE [Suspect]
     Indication: DRUG USE FOR UNKNOWN INDICATION
     Dosage: 2 DF (1 IN 1 D), ORAL
     Route: 048
     Dates: end: 20060709
  2. SULFAMETHOXAZOLE + TRIMETHOPRIM [Suspect]
     Indication: DRUG USE FOR UNKNOWN INDICATION
     Dosage: 2 DF (1 IN 1 D), ORAL
     Route: 048
     Dates: end: 20060709
  3. PREDNISONE TAB [Suspect]
     Indication: DRUG USE FOR UNKNOWN INDICATION
     Dosage: 5 MG (1 IN 1 D), ORAL
     Route: 048
     Dates: end: 20060709

REACTIONS (2)
  - OEDEMATOUS PANCREATITIS [None]
  - PANCREATITIS ACUTE [None]
